FAERS Safety Report 5374951-8 (Version None)
Quarter: 2007Q2

REPORT INFORMATION
  Report Type: 
  Country: None (occurrence: None)
  Receive Date: 20070627
  Receipt Date: 20070627
  Transmission Date: 20071010
  Serious: Yes (Life-Threatening, Hospitalization)
  Sender: FDA-Public Use
  Company Number: None

PATIENT
  Age: 69 Year
  Sex: Male

DRUGS (3)
  1. HEPARIN [Suspect]
     Indication: PROPHYLAXIS
     Dosage: 5000 UNITS SQ
     Route: 058
     Dates: start: 20070303, end: 20070305
  2. HEPARIN [Suspect]
     Indication: DEEP VEIN THROMBOSIS
     Dosage: NOMOGRAM
     Dates: start: 20070305, end: 20070308
  3. HEPARIN [Suspect]
     Indication: PULMONARY EMBOLISM
     Dosage: NOMOGRAM
     Dates: start: 20070305, end: 20070308

REACTIONS (1)
  - THROMBOCYTOPENIA [None]
